FAERS Safety Report 9345407 (Version 12)
Quarter: 2016Q4

REPORT INFORMATION
  Report Type: Report from Study
  Country: CA (occurrence: CA)
  Receive Date: 20130613
  Receipt Date: 20161009
  Transmission Date: 20170207
  Serious: Yes (Hospitalization, Other)
  Sender: FDA-Public Use
  Company Number: CA-ROCHE-1235709

PATIENT
  Age: 51 Year
  Sex: Female
  Weight: 102.1 kg

DRUGS (15)
  1. PREDNISONE. [Concomitant]
     Active Substance: PREDNISONE
  2. SYNTHROID [Concomitant]
     Active Substance: LEVOTHYROXINE SODIUM
  3. METHOTREXATE. [Concomitant]
     Active Substance: METHOTREXATE
  4. RANITIDINE. [Concomitant]
     Active Substance: RANITIDINE
  5. DIPHENHYDRAMINE HCL [Concomitant]
     Indication: PREMEDICATION
     Route: 048
     Dates: start: 20111020
  6. EPIPEN [Concomitant]
     Active Substance: EPINEPHRINE
  7. RITUXAN [Suspect]
     Active Substance: RITUXIMAB
     Route: 042
     Dates: start: 20130812
  8. ACETAMINOPHEN. [Concomitant]
     Active Substance: ACETAMINOPHEN
     Indication: PREMEDICATION
     Route: 048
     Dates: start: 20111020
  9. ACTEMRA [Suspect]
     Active Substance: TOCILIZUMAB
     Indication: RHEUMATOID ARTHRITIS
     Route: 042
     Dates: start: 20110226, end: 20110321
  10. FOLIC ACID. [Concomitant]
     Active Substance: FOLIC ACID
  11. CORTISONE [Suspect]
     Active Substance: CORTISONE\HYDROCORTISONE
     Indication: PRODUCT USED FOR UNKNOWN INDICATION
     Route: 065
  12. SULFASALAZINE DELAYED-RELEASE [Concomitant]
     Active Substance: SULFASALAZINE
  13. ALENDRONATE [Concomitant]
     Active Substance: ALENDRONATE SODIUM
  14. RITUXAN [Suspect]
     Active Substance: RITUXIMAB
     Indication: RHEUMATOID ARTHRITIS
     Dosage: DAY 1 AND DAY 15
     Route: 042
     Dates: start: 20111020
  15. METHYLPREDNISOLONE. [Concomitant]
     Active Substance: METHYLPREDNISOLONE
     Indication: PREMEDICATION
     Route: 042
     Dates: start: 20111020

REACTIONS (21)
  - Chills [Not Recovered/Not Resolved]
  - Visual acuity reduced [Not Recovered/Not Resolved]
  - Road traffic accident [Unknown]
  - Arthralgia [Not Recovered/Not Resolved]
  - Erythema [Unknown]
  - Nasopharyngitis [Not Recovered/Not Resolved]
  - Musculoskeletal pain [Not Recovered/Not Resolved]
  - Eczema [Not Recovered/Not Resolved]
  - Acne [Not Recovered/Not Resolved]
  - Headache [Recovered/Resolved]
  - Drug hypersensitivity [Unknown]
  - Epistaxis [Recovered/Resolved]
  - Vision blurred [Unknown]
  - Rash pustular [Recovering/Resolving]
  - Infection [Unknown]
  - Therapy partial responder [Not Recovered/Not Resolved]
  - Chills [Not Recovered/Not Resolved]
  - Wrist fracture [Unknown]
  - Bone disorder [Unknown]
  - Weight increased [Not Recovered/Not Resolved]
  - Joint swelling [Unknown]

NARRATIVE: CASE EVENT DATE: 2013
